FAERS Safety Report 14912709 (Version 2)
Quarter: 2018Q2

REPORT INFORMATION
  Report Type: Spontaneous
  Country: US (occurrence: US)
  Receive Date: 20180518
  Receipt Date: 20180626
  Transmission Date: 20180711
  Serious: No
  Sender: FDA-Public Use
  Company Number: US-GLAXOSMITHKLINE-US2018083222

PATIENT
  Age: 57 Year
  Sex: Male

DRUGS (1)
  1. FLONASE ALLERGY RELIEF [Suspect]
     Active Substance: FLUTICASONE PROPIONATE
     Indication: INFLUENZA
     Dosage: UNK UNK, 1D
     Dates: start: 20180206, end: 20180206

REACTIONS (7)
  - Oropharyngeal discomfort [Not Recovered/Not Resolved]
  - Hyposmia [Not Recovered/Not Resolved]
  - Nasal dryness [Not Recovered/Not Resolved]
  - Hypogeusia [Not Recovered/Not Resolved]
  - Nasal discomfort [Not Recovered/Not Resolved]
  - Off label use [Unknown]
  - Dry throat [Not Recovered/Not Resolved]

NARRATIVE: CASE EVENT DATE: 20180206
